FAERS Safety Report 9847812 (Version 1)
Quarter: 2014Q1

REPORT INFORMATION
  Report Type: Spontaneous
  Country: US (occurrence: US)
  Receive Date: 20140128
  Receipt Date: 20140128
  Transmission Date: 20141002
  Serious: No
  Sender: FDA-Public Use
  Company Number: US-BIOGENIDEC-2014BI006711

PATIENT
  Age: 59 Year
  Sex: Female

DRUGS (8)
  1. TECFIDERA [Suspect]
     Indication: MULTIPLE SCLEROSIS
     Route: 048
     Dates: start: 201304, end: 201312
  2. TECFIDERA [Suspect]
     Indication: MULTIPLE SCLEROSIS
     Route: 048
     Dates: start: 201312
  3. EFFEXOR [Concomitant]
  4. NEURONTIN [Concomitant]
  5. VITAMIN D [Concomitant]
  6. OXYCONTIN [Concomitant]
  7. OXYCODONE [Concomitant]
  8. ASPIRIN [Concomitant]

REACTIONS (2)
  - Prescribed underdose [Not Recovered/Not Resolved]
  - White blood cell count decreased [Unknown]
